FAERS Safety Report 10047698 (Version 1)
Quarter: 2014Q1

REPORT INFORMATION
  Report Type: Spontaneous
  Country: US (occurrence: US)
  Receive Date: 20140331
  Receipt Date: 20140331
  Transmission Date: 20141002
  Serious: No
  Sender: FDA-Public Use
  Company Number: US-009507513-1403USA010355

PATIENT
  Sex: Female

DRUGS (2)
  1. NEXPLANON [Suspect]
     Indication: CONTRACEPTION
     Dosage: 68 MG/ONE ROD
     Route: 059
     Dates: start: 201402, end: 2014
  2. NEXPLANON [Suspect]
     Dosage: 68 MG/ONE ROD
     Route: 059
     Dates: start: 2014

REACTIONS (3)
  - Staphylococcal infection [Recovered/Resolved]
  - Implant site induration [Recovering/Resolving]
  - Hypersensitivity [Recovering/Resolving]
